FAERS Safety Report 7828499-9 (Version None)
Quarter: 2011Q4

REPORT INFORMATION
  Report Type: 
  Country: None (occurrence: None)
  Receive Date: 20111020
  Receipt Date: 20111015
  Transmission Date: 20120403
  Serious: Yes (Other)
  Sender: FDA-Public Use
  Company Number: US-ABBOTT-11P-163-0864447-00

PATIENT
  Sex: Male

DRUGS (4)
  1. HUMIRA [Suspect]
     Indication: OSTEOMYELITIS CHRONIC
     Dates: start: 20080101, end: 20110301
  2. HUMIRA [Suspect]
     Dates: start: 20110701
  3. CELEBREX [Concomitant]
     Indication: PRODUCT USED FOR UNKNOWN INDICATION
  4. ALEVE [Concomitant]
     Indication: PRODUCT USED FOR UNKNOWN INDICATION

REACTIONS (13)
  - TREMOR [None]
  - PURULENT DISCHARGE [None]
  - DRY SKIN [None]
  - DIZZINESS [None]
  - SKIN EXFOLIATION [None]
  - VISION BLURRED [None]
  - PALPITATIONS [None]
  - INCORRECT STORAGE OF DRUG [None]
  - COLD SWEAT [None]
  - VOMITING [None]
  - SKIN DISORDER [None]
  - OSTEOMYELITIS CHRONIC [None]
  - SKIN FISSURES [None]
